FAERS Safety Report 18441627 (Version 1)
Quarter: 2020Q4

REPORT INFORMATION
  Report Type: Spontaneous
  Country: JP (occurrence: JP)
  Receive Date: 20201029
  Receipt Date: 20201029
  Transmission Date: 20210114
  Serious: Yes (Other)
  Sender: FDA-Public Use
  Company Number: JP-EISAI MEDICAL RESEARCH-EC-2020-082667

PATIENT
  Sex: Female

DRUGS (3)
  1. TRASTUZUMAB(GENETICAL RECOMBINATION) [Concomitant]
     Active Substance: TRASTUZUMAB
     Indication: BREAST CANCER STAGE IV
     Dosage: DOSE AND FREQUENCY UNKNOWN
     Route: 065
  2. PERTUZUMAB(GENETICAL RECOMBINATION) [Concomitant]
     Active Substance: PERTUZUMAB
     Indication: BREAST CANCER STAGE IV
     Dosage: DOSE AND FREQUENCY UNKNOWN
     Route: 065
  3. ERIBULIN [Suspect]
     Active Substance: ERIBULIN
     Indication: INVASIVE DUCTAL BREAST CARCINOMA
     Dosage: DOSE AND FREQUENCY UNKNOWN
     Route: 041

REACTIONS (1)
  - Interstitial lung disease [Recovering/Resolving]
